FAERS Safety Report 8930543 (Version 3)
Quarter: 2013Q1

REPORT INFORMATION
  Report Type: Spontaneous
  Country: DK (occurrence: SI)
  Receive Date: 20121128
  Receipt Date: 20130103
  Transmission Date: 20140127
  Serious: Yes (Other)
  Sender: FDA-Public Use
  Company Number: SI-FRI-1000040624

PATIENT
  Sex: Male
  Weight: 92 kg

DRUGS (5)
  1. ESCITALOPRAM [Suspect]
     Indication: FATIGUE
     Dosage: 10 MG
     Route: 048
     Dates: start: 20070910, end: 2009
  2. ESCITALOPRAM [Suspect]
     Indication: FATIGUE
     Dosage: 5 MG
     Route: 048
     Dates: start: 2009, end: 20121114
  3. CRESTOR [Concomitant]
     Indication: BLOOD CHOLESTEROL INCREASED
     Dosage: 5 MG
     Route: 048
  4. ASPIRIN PROTECT [Concomitant]
     Indication: HYPERTENSION
     Dosage: 100 MG
     Route: 048
  5. MICARDIS [Concomitant]
     Indication: HYPERTENSION
     Dosage: 40 MG
     Route: 048

REACTIONS (5)
  - Bursitis [Unknown]
  - Osteoarthritis [Unknown]
  - Arthralgia [Unknown]
  - Fall [Unknown]
  - Off label use [Unknown]
